FAERS Safety Report 10165905 (Version 2)
Quarter: 2014Q2

REPORT INFORMATION
  Report Type: Spontaneous
  Country: US (occurrence: US)
  Receive Date: 20140510
  Receipt Date: 20140510
  Transmission Date: 20141212
  Serious: No
  Sender: FDA-Public Use
  Company Number: US-BRISTOL-MYERS SQUIBB COMPANY-18588731

PATIENT
  Sex: Female

DRUGS (1)
  1. BYDUREON 2MG VIAL + SYRINGE [Suspect]
     Route: 058

REACTIONS (6)
  - Food aversion [Unknown]
  - Weight decreased [Unknown]
  - Decreased appetite [Unknown]
  - Nausea [Unknown]
  - Underdose [Unknown]
  - Wrong technique in drug usage process [Recovered/Resolved]
